FAERS Safety Report 20700719 (Version 1)
Quarter: 2022Q2

REPORT INFORMATION
  Report Type: Spontaneous
  Country: AE (occurrence: AE)
  Receive Date: 20220412
  Receipt Date: 20220412
  Transmission Date: 20220721
  Serious: Yes (Hospitalization, Other)
  Sender: FDA-Public Use
  Company Number: AE-INSUD PHARMA-2204AE01414

PATIENT

DRUGS (11)
  1. TESTOSTERONE [Suspect]
     Active Substance: TESTOSTERONE
     Indication: Muscle building therapy
     Dosage: TESTOSTERONE ENANTHATE TWO TIMES PER WEEK
     Route: 065
  2. TESTOSTERONE [Suspect]
     Active Substance: TESTOSTERONE
     Dosage: TESTOSTERONE PROPIONATE FOUR TIMES A WEEK
     Route: 065
  3. HALOTESTIN [Suspect]
     Active Substance: FLUOXYMESTERONE
     Indication: Muscle building therapy
     Dosage: UNKNOWN
     Route: 065
  4. MESTEROLONE [Suspect]
     Active Substance: MESTEROLONE
     Indication: Muscle building therapy
     Dosage: UNKNOWN
     Route: 065
  5. MASTERON [Suspect]
     Active Substance: DROMOSTANOLONE PROPIONATE
     Indication: Muscle building therapy
     Dosage: FOUR TIMES PER WEEK
     Route: 065
  6. WINSTROL [Suspect]
     Active Substance: STANOZOLOL
     Indication: Muscle building therapy
     Dosage: FOUR TIMES PER WEEK
     Route: 065
  7. NOLVADEX [Suspect]
     Active Substance: TAMOXIFEN CITRATE
     Indication: Muscle building therapy
     Dosage: UNKNOWN
     Route: 065
  8. TRENBOLONE ACETATE [Suspect]
     Active Substance: TRENBOLONE ACETATE
     Indication: Muscle building therapy
     Dosage: FOUR TIMES PER WEEK
     Route: 065
  9. CLENBUTEROL [Suspect]
     Active Substance: CLENBUTEROL
     Indication: Muscle building therapy
     Dosage: THREE TIMES PER WEEK
     Route: 065
  10. VITAMINS [Suspect]
     Active Substance: VITAMINS
     Indication: Muscle building therapy
     Dosage: UNKNOWN
     Route: 065
  11. SOMATROPIN [Suspect]
     Active Substance: SOMATROPIN
     Indication: Muscle building therapy
     Dosage: INJECTING 5 TIMES PER WEEK AT DOUBLE THE RECOMMENDED DOSE
     Route: 058

REACTIONS (5)
  - Pancreatitis acute [Recovered/Resolved]
  - Abdominal pain upper [Recovered/Resolved]
  - Back pain [Recovered/Resolved]
  - Nausea [Recovered/Resolved]
  - Abdominal tenderness [Recovered/Resolved]
